FAERS Safety Report 12664519 (Version 5)
Quarter: 2017Q1

REPORT INFORMATION
  Report Type: Spontaneous
  Country: US (occurrence: US)
  Receive Date: 20160818
  Receipt Date: 20170314
  Transmission Date: 20170428
  Serious: No
  Sender: FDA-Public Use
  Company Number: US-PFIZER INC-2016096289

PATIENT
  Age: 72 Year
  Sex: Female
  Weight: 112.15 kg

DRUGS (6)
  1. IBRANCE [Suspect]
     Active Substance: PALBOCICLIB
     Indication: BREAST CANCER METASTATIC
     Dosage: 100 MG, CYCLIC (DAYS 1-21, EVERY 28 DAYS)
     Route: 048
     Dates: start: 20151228
  2. IBRANCE [Suspect]
     Active Substance: PALBOCICLIB
     Dosage: 100 MG, CYCLIC (DAYS 1-21, EVERY 28 DAYS)
     Route: 048
     Dates: start: 20151228
  3. IBRANCE [Suspect]
     Active Substance: PALBOCICLIB
     Dosage: 100 MG, CYCLIC [D 1-21 Q 28 DAYS]
     Route: 048
     Dates: start: 20151228
  4. IBRANCE [Suspect]
     Active Substance: PALBOCICLIB
     Dosage: 100 MG, CYCLIC (DAYS 1-21, EVERY 28 DAYS)
     Route: 048
     Dates: start: 20151228
  5. IBRANCE [Suspect]
     Active Substance: PALBOCICLIB
     Dosage: 100 MG, CYCLIC (DAYS 1-21, EVERY 28 DAYS)
     Route: 048
     Dates: start: 20151228
  6. IBRANCE [Suspect]
     Active Substance: PALBOCICLIB
     Dosage: 100 MG, CYCLIC (DAYS 1-21, EVERY 28 DAYS)
     Route: 048
     Dates: start: 20151228

REACTIONS (4)
  - Neoplasm progression [Unknown]
  - Musculoskeletal stiffness [Unknown]
  - Joint stiffness [Unknown]
  - Alopecia [Unknown]

NARRATIVE: CASE EVENT DATE: 2016
